FAERS Safety Report 7476073-9 (Version None)
Quarter: 2011Q2

REPORT INFORMATION
  Report Type: 
  Country: None (occurrence: None)
  Receive Date: 20110512
  Receipt Date: 20100323
  Transmission Date: 20111010
  Serious: Yes (Other)
  Sender: FDA-Public Use
  Company Number: DE-GENENTECH-318404

PATIENT
  Age: 67 Year
  Sex: Female

DRUGS (1)
  1. LUCENTIS [Suspect]
     Indication: AGE-RELATED MACULAR DEGENERATION
     Dosage: UNK UNK, UNKNOWN
     Route: 031
     Dates: start: 20090924

REACTIONS (3)
  - RETINAL DETACHMENT [None]
  - VISUAL ACUITY REDUCED [None]
  - EYE INFLAMMATION [None]
